FAERS Safety Report 7011149-1 (Version None)
Quarter: 2010Q3

REPORT INFORMATION
  Report Type: 
  Country: None (occurrence: None)
  Receive Date: 20100922
  Receipt Date: 20100922
  Transmission Date: 20110219
  Serious: Yes (Hospitalization)
  Sender: FDA-Public Use
  Company Number: None

PATIENT
  Age: 20 Year
  Sex: Female
  Weight: 76.2043 kg

DRUGS (1)
  1. DEMEROL [Suspect]
     Indication: PAIN
     Dates: start: 20090310, end: 20090416

REACTIONS (1)
  - HYPERSENSITIVITY [None]
